FAERS Safety Report 6369347-6 (Version None)
Quarter: 2009Q3

REPORT INFORMATION
  Report Type: 
  Country: None (occurrence: None)
  Receive Date: 20090917
  Receipt Date: 20090904
  Transmission Date: 20100115
  Serious: Yes (Hospitalization)
  Sender: FDA-Public Use
  Company Number: 2009SP018943

PATIENT
  Age: 46 Year
  Sex: Female
  Weight: 86.1834 kg

DRUGS (6)
  1. NUVARING [Suspect]
     Indication: OVARIAN CYST
     Dates: start: 20040826, end: 20051201
  2. NUVARING [Suspect]
     Indication: PREMENSTRUAL SYNDROME
     Dates: start: 20040826, end: 20051201
  3. MIDRIN [Concomitant]
  4. ENTEX SOLUTION [Concomitant]
  5. VALTREX [Concomitant]
  6. OXYCODONE [Concomitant]

REACTIONS (6)
  - ACTIVATED PARTIAL THROMBOPLASTIN TIME PROLONGED [None]
  - BLOOD CHOLESTEROL INCREASED [None]
  - HIGH DENSITY LIPOPROTEIN INCREASED [None]
  - LOW DENSITY LIPOPROTEIN INCREASED [None]
  - PALPITATIONS [None]
  - PULMONARY EMBOLISM [None]
